FAERS Safety Report 14631320 (Version 2)
Quarter: 2018Q1

REPORT INFORMATION
  Report Type: Report from Study
  Country: None (occurrence: AU)
  Receive Date: 20180313
  Receipt Date: 20180322
  Transmission Date: 20180509
  Serious: Yes (Death)
  Sender: FDA-Public Use
  Company Number: AU-ABBVIE-18P-008-2285830-00

PATIENT
  Age: 75 Year
  Sex: Male

DRUGS (1)
  1. VENETOCLAX. [Suspect]
     Active Substance: VENETOCLAX
     Indication: ACUTE MYELOID LEUKAEMIA
     Route: 048
     Dates: start: 20180220, end: 20180301

REACTIONS (3)
  - Headache [Unknown]
  - Central nervous system leukaemia [Fatal]
  - Neurological symptom [Unknown]

NARRATIVE: CASE EVENT DATE: 20180228
